FAERS Safety Report 16690213 (Version 4)
Quarter: 2023Q2

REPORT INFORMATION
  Report Type: Report from Study
  Country: US (occurrence: US)
  Receive Date: 20190809
  Receipt Date: 20230509
  Transmission Date: 20230721
  Serious: Yes (Hospitalization, Other)
  Sender: FDA-Public Use
  Company Number: US-SHIRE-US201925982

PATIENT
  Age: 42 Year
  Sex: Male

DRUGS (5)
  1. IDURSULFASE [Suspect]
     Active Substance: IDURSULFASE
     Indication: Mucopolysaccharidosis II
     Dosage: 11 DOSAGE FORM, 1/WEEK
     Route: 042
     Dates: start: 20061121
  2. IDURSULFASE [Suspect]
     Active Substance: IDURSULFASE
     Dosage: 66 DOSAGE FORM, 1/WEEK
     Route: 042
     Dates: start: 20160107
  3. IDURSULFASE [Suspect]
     Active Substance: IDURSULFASE
     Dosage: 66 DOSAGE FORM, 1/WEEK
     Route: 042
     Dates: start: 201601
  4. IDURSULFASE [Suspect]
     Active Substance: IDURSULFASE
     Dosage: 66 MILLIGRAM, 1/WEEK
     Route: 042
     Dates: start: 201602
  5. IDURSULFASE [Suspect]
     Active Substance: IDURSULFASE
     Dosage: 66 MILLIGRAM, 1/WEEK
     Route: 042
     Dates: start: 20180420

REACTIONS (13)
  - Bacteraemia [Recovered/Resolved]
  - Seizure [Unknown]
  - Foot fracture [Recovering/Resolving]
  - Weight increased [Unknown]
  - Poor venous access [Unknown]
  - Infusion site extravasation [Unknown]
  - Contusion [Unknown]
  - Ecchymosis [Unknown]
  - Infusion site induration [Unknown]
  - Infusion site erythema [Unknown]
  - Infusion site warmth [Unknown]
  - Product packaging quantity issue [Unknown]
  - Inappropriate schedule of product administration [Unknown]

NARRATIVE: CASE EVENT DATE: 20230407
